FAERS Safety Report 4657895-6 (Version None)
Quarter: 2005Q2

REPORT INFORMATION
  Report Type: 
  Country: None (occurrence: None)
  Receive Date: 20050510
  Receipt Date: 20041115
  Transmission Date: 20051028
  Serious: Yes (Hospitalization)
  Sender: FDA-Public Use
  Company Number: US-ROCHE-386416

PATIENT
  Age: 54 Year
  Sex: Female
  Weight: 101 kg

DRUGS (8)
  1. PEG-INTERFERON ALFA 2A (RO 25-8310) [Suspect]
     Route: 058
     Dates: start: 20040720, end: 20041105
  2. PEG-INTERFERON ALFA 2A (RO 25-8310) [Suspect]
     Route: 058
     Dates: start: 20050302, end: 20050424
  3. RIBAVIRIN [Suspect]
     Route: 048
     Dates: start: 20040720, end: 20041105
  4. TOPRAL [Concomitant]
     Indication: HYPERTENSION
     Dosage: DOSE INCREASED FROM 100 MG TO 200 MG ON 24 APRIL 2005.
     Dates: start: 20020615
  5. INSULIN [Concomitant]
     Dosage: DOSE CHANGED TO 2.5 MG TWICE DAILY ON 24 APRIL 2005 (PREVIOUSLY 15 UNITS).
     Dates: start: 20020615
  6. TEVETEN [Concomitant]
     Dosage: TEVETEN HCT.
     Dates: start: 20030615
  7. DARVOCET [Concomitant]
     Dates: start: 20020615
  8. ZOLOFT [Concomitant]
     Dates: start: 20041019

REACTIONS (7)
  - ANAEMIA [None]
  - ASTHENIA [None]
  - DIZZINESS [None]
  - GRAND MAL CONVULSION [None]
  - HYPOKALAEMIA [None]
  - NAUSEA [None]
  - VOMITING [None]
